FAERS Safety Report 6734065-9 (Version None)
Quarter: 2010Q2

REPORT INFORMATION
  Report Type: 
  Country: None (occurrence: None)
  Receive Date: 20100520
  Receipt Date: 20100506
  Transmission Date: 20101027
  Serious: Yes (Other)
  Sender: FDA-Public Use
  Company Number: US-BAYER-201015212NA

PATIENT
  Age: 39 Year
  Sex: Male
  Weight: 81 kg

DRUGS (41)
  1. MAGNEVIST [Suspect]
     Indication: NUCLEAR MAGNETIC RESONANCE IMAGING BRAIN
     Dates: start: 20051026, end: 20051026
  2. MAGNEVIST [Suspect]
     Dates: start: 20060202, end: 20060202
  3. MAGNEVIST [Suspect]
     Dates: start: 20060421, end: 20060421
  4. MAGNEVIST [Suspect]
     Dates: start: 20070807, end: 20070807
  5. MAGNEVIST [Suspect]
     Dates: start: 20060914, end: 20060914
  6. MAGNEVIST [Suspect]
     Dates: start: 20070426, end: 20070426
  7. UNSPECIFIED GADOLINIUM [Suspect]
     Indication: NUCLEAR MAGNETIC RESONANCE IMAGING BRAIN
     Dates: start: 20030312, end: 20030312
  8. UNSPECIFIED GADOLINIUM [Suspect]
     Dates: start: 20061114, end: 20061114
  9. UNSPECIFIED GADOLINIUM [Suspect]
     Dates: start: 20060208, end: 20060208
  10. UNSPECIFIED GADOLINIUM [Suspect]
     Dates: start: 20040804, end: 20040804
  11. UNSPECIFIED GADOLINIUM [Suspect]
     Dates: start: 20050324, end: 20050324
  12. UNSPECIFIED GADOLINIUM [Suspect]
     Dates: start: 20050929, end: 20050929
  13. UNSPECIFIED GADOLINIUM [Suspect]
     Dates: start: 20060930, end: 20060930
  14. UNSPECIFIED GADOLINIUM [Suspect]
     Dates: start: 20070131, end: 20070131
  15. UNSPECIFIED GADOLINIUM [Suspect]
     Dates: start: 20040806, end: 20040806
  16. UNSPECIFIED GADOLINIUM [Suspect]
     Dates: start: 20070627, end: 20070627
  17. VENOFER [Concomitant]
  18. EPOGEN [Concomitant]
  19. PORK INSULIN [Concomitant]
  20. DIOVAN [Concomitant]
  21. CLONIDINE HCL [Concomitant]
  22. HYDROMORPHONE HCL [Concomitant]
  23. LABATALOL HCL [Concomitant]
  24. LASIX [Concomitant]
  25. KEPPRA [Concomitant]
  26. NEPHRO-VITE [Concomitant]
  27. NEXIUM [Concomitant]
  28. NORVASC [Concomitant]
  29. RENAGEL [Concomitant]
     Dosage: TOTAL DAILY DOSE: 2400 MG
     Route: 048
  30. OXYCONTIN [Concomitant]
  31. OXYFAST [Concomitant]
  32. REGLAN [Concomitant]
  33. TRAZODONE HCL [Concomitant]
  34. VALIUM [Concomitant]
  35. SENSIPAR [Concomitant]
  36. REGLAN [Concomitant]
     Dosage: 10 MG TID
  37. METHADONE [Concomitant]
  38. DILAUDID [Concomitant]
  39. NORTRIPTYLINE HCL [Concomitant]
  40. MARINOL [Concomitant]
  41. PREDNISONE [Concomitant]
     Dosage: 10 MG DAILY

REACTIONS (11)
  - ARTHRALGIA [None]
  - ECCHYMOSIS [None]
  - NEPHROGENIC SYSTEMIC FIBROSIS [None]
  - OEDEMA PERIPHERAL [None]
  - PIGMENTATION DISORDER [None]
  - PURPURA [None]
  - RASH [None]
  - RASH MACULAR [None]
  - SKIN HYPERPIGMENTATION [None]
  - SKIN PLAQUE [None]
  - SKIN ULCER HAEMORRHAGE [None]
